FAERS Safety Report 8264184-X (Version None)
Quarter: 2012Q2

REPORT INFORMATION
  Report Type: 
  Country: None (occurrence: None)
  Receive Date: 20120403
  Receipt Date: 20120329
  Transmission Date: 20120825
  Serious: Yes (Life-Threatening, Hospitalization, Disabling, Other)
  Sender: FDA-Public Use
  Company Number: 2010SP054450

PATIENT
  Age: 26 Year
  Sex: Female
  Weight: 68.0396 kg

DRUGS (2)
  1. NUVARING [Suspect]
     Indication: CONTRACEPTION
     Dosage: 1 DF;Q3W;VAG
     Route: 067
     Dates: start: 20080729, end: 20081027
  2. ADDERALL XR 10 [Concomitant]

REACTIONS (22)
  - MUSCLE SPASMS [None]
  - HEADACHE [None]
  - NECK PAIN [None]
  - NAUSEA [None]
  - PULMONARY EMBOLISM [None]
  - VIRAL INFECTION [None]
  - PARAESTHESIA [None]
  - ASTHENIA [None]
  - HYPERCOAGULATION [None]
  - HYPERHIDROSIS [None]
  - ABDOMINAL PAIN LOWER [None]
  - INJURY [None]
  - INSOMNIA [None]
  - POST-TRAUMATIC STRESS DISORDER [None]
  - MUSCULOSKELETAL PAIN [None]
  - PELVIC PAIN [None]
  - MIGRAINE [None]
  - HYPOAESTHESIA [None]
  - FATIGUE [None]
  - VOMITING [None]
  - PULMONARY INFARCTION [None]
  - INTERNATIONAL NORMALISED RATIO INCREASED [None]
